FAERS Safety Report 19699912 (Version 1)
Quarter: 2021Q3

REPORT INFORMATION
  Report Type: Spontaneous
  Country: US (occurrence: US)
  Receive Date: 20210813
  Receipt Date: 20210813
  Transmission Date: 20211014
  Serious: Yes (Hospitalization)
  Sender: FDA-Public Use
  Company Number: US-CATALYST PHARMACEUTICALS, INC-2021CAT00364

PATIENT
  Age: 54 Year
  Sex: Female
  Weight: 49.9 kg

DRUGS (10)
  1. KEPPRA [Concomitant]
     Active Substance: LEVETIRACETAM
  2. VITAMIN B12 [Concomitant]
     Active Substance: CYANOCOBALAMIN
  3. VITAMIN C [Concomitant]
     Active Substance: ASCORBIC ACID
  4. IVIG [Concomitant]
     Active Substance: HUMAN IMMUNOGLOBULIN G
  5. FIRDAPSE [Suspect]
     Active Substance: AMIFAMPRIDINE PHOSPHATE
     Indication: MYASTHENIC SYNDROME
     Dosage: ^0.5 MG^, 3X/DAY
     Dates: start: 20190314
  6. FUROSEMIDE. [Concomitant]
     Active Substance: FUROSEMIDE
  7. SUCRALFATE. [Concomitant]
     Active Substance: SUCRALFATE
  8. VITAMIN D [Concomitant]
     Active Substance: VITAMIN D NOS
  9. GABAPENTIN. [Concomitant]
     Active Substance: GABAPENTIN
  10. MESTINON [Concomitant]
     Active Substance: PYRIDOSTIGMINE BROMIDE

REACTIONS (1)
  - Anaemia [Unknown]

NARRATIVE: CASE EVENT DATE: 20210803
